FAERS Safety Report 18918984 (Version 1)
Quarter: 2021Q1

REPORT INFORMATION
  Report Type: Spontaneous
  Country: GB (occurrence: GB)
  Receive Date: 20210220
  Receipt Date: 20210220
  Transmission Date: 20210420
  Serious: Yes (Death, Other)
  Sender: FDA-Public Use
  Company Number: NVSC2021GB038319

PATIENT
  Age: 61 Year
  Sex: Female

DRUGS (22)
  1. TRASTUZUMAB. [Suspect]
     Active Substance: TRASTUZUMAB
     Dosage: 172 MG, Q3W
     Route: 042
     Dates: start: 20151201, end: 20151221
  2. NERATINIB [Suspect]
     Active Substance: NERATINIB
     Indication: HER2 POSITIVE BREAST CANCER
     Dosage: 40 MG, QD
     Route: 048
     Dates: start: 20170901, end: 20180314
  3. PERTUZUMAB. [Suspect]
     Active Substance: PERTUZUMAB
     Dosage: 420 MG, Q3W (TARGETED THERAPY)
     Route: 042
     Dates: start: 20150622, end: 20151102
  4. CAPECITABINE. [Suspect]
     Active Substance: CAPECITABINE
     Indication: HER2 POSITIVE BREAST CANCER
     Dosage: 1500 MG, QD
     Route: 048
     Dates: start: 20170210, end: 20170728
  5. NERATINIB [Suspect]
     Active Substance: NERATINIB
     Dosage: 40 MG
     Route: 048
  6. PERTUZUMAB. [Suspect]
     Active Substance: PERTUZUMAB
     Dosage: 420 MG, Q3W
     Route: 042
  7. DOCETAXEL. [Suspect]
     Active Substance: DOCETAXEL
     Dosage: 86 MG, Q3W (DOSE DISCONTINUED)
     Route: 065
     Dates: start: 20150629, end: 20150720
  8. TRASTUZUMAB. [Suspect]
     Active Substance: TRASTUZUMAB
     Dosage: UNK
     Route: 042
  9. TRASTUZUMAB. [Suspect]
     Active Substance: TRASTUZUMAB
     Dosage: 300 MG, Q3W
     Route: 042
  10. ERIBULIN MESILATE [Suspect]
     Active Substance: ERIBULIN
     Dosage: 1.5 MG, Q3W
     Route: 042
  11. PERTUZUMAB. [Suspect]
     Active Substance: PERTUZUMAB
     Dosage: 840 MG (LOADING DOSE)
     Route: 042
  12. DOCETAXEL. [Suspect]
     Active Substance: DOCETAXEL
     Indication: PRODUCT USED FOR UNKNOWN INDICATION
     Dosage: 108 MG, Q3W
     Route: 042
  13. ERIBULIN MESILATE [Suspect]
     Active Substance: ERIBULIN
     Dosage: 1.5 MG, Q3W
     Route: 042
  14. CAPECITABINE. [Suspect]
     Active Substance: CAPECITABINE
     Dosage: 3000 MG, QD
     Route: 048
  15. CAPECITABINE. [Suspect]
     Active Substance: CAPECITABINE
     Dosage: 3000 MG, BID
     Route: 048
     Dates: start: 20170210, end: 20170728
  16. TRASTUZUMAB. [Suspect]
     Active Substance: TRASTUZUMAB
     Dosage: 300 MG, Q3W
     Route: 042
     Dates: start: 20150629, end: 20151102
  17. NERATINIB [Suspect]
     Active Substance: NERATINIB
     Dosage: UNK
     Route: 048
  18. DOCETAXEL. [Suspect]
     Active Substance: DOCETAXEL
     Dosage: 108 MG, Q3W (DOSE MODIFIED)
     Route: 042
     Dates: start: 20150602, end: 20150602
  19. ERIBULIN MESILATE [Suspect]
     Active Substance: ERIBULIN
     Indication: HER2 POSITIVE BREAST CANCER
     Dosage: 1.5 MG, Q3W
     Route: 042
     Dates: start: 20160411
  20. PERTUZUMAB. [Suspect]
     Active Substance: PERTUZUMAB
     Indication: HER2 POSITIVE BREAST CANCER
     Dosage: 1 DF
     Route: 042
  21. TRASTUZUMAB. [Suspect]
     Active Substance: TRASTUZUMAB
     Indication: HER2 POSITIVE BREAST CANCER
     Dosage: 350 MG (LOADING DOSE FORM: INFUSION, SOLUTION)
     Route: 042
     Dates: start: 20150601, end: 20150601
  22. TRASTUZUMAB. [Suspect]
     Active Substance: TRASTUZUMAB
     Dosage: 350 MG (LOADING DOSE)
     Route: 042
     Dates: start: 20150601, end: 20150601

REACTIONS (25)
  - Neutropenia [Not Recovered/Not Resolved]
  - Folate deficiency [Recovered/Resolved]
  - Palpitations [Unknown]
  - Decreased appetite [Recovered/Resolved]
  - Weight decreased [Not Recovered/Not Resolved]
  - Nausea [Recovered/Resolved]
  - Disease progression [Fatal]
  - Throat irritation [Not Recovered/Not Resolved]
  - Fatigue [Recovered/Resolved]
  - Pancytopenia [Not Recovered/Not Resolved]
  - Tremor [Recovered/Resolved]
  - Pyrexia [Recovered/Resolved]
  - Colitis [Not Recovered/Not Resolved]
  - Mucosal inflammation [Recovered/Resolved]
  - Dysphonia [Recovering/Resolving]
  - Odynophagia [Not Recovered/Not Resolved]
  - Diarrhoea [Recovered/Resolved]
  - Cough [Recovered/Resolved]
  - Fatigue [Recovered/Resolved]
  - Lethargy [Recovered/Resolved]
  - Thrombocytopenia [Not Recovered/Not Resolved]
  - Dyspepsia [Recovered/Resolved]
  - Rash pruritic [Recovered/Resolved]
  - Off label use [Unknown]
  - Hypoaesthesia [Unknown]

NARRATIVE: CASE EVENT DATE: 201508
